FAERS Safety Report 11054193 (Version 1)
Quarter: 2015Q2

REPORT INFORMATION
  Report Type: Spontaneous
  Country: US (occurrence: US)
  Receive Date: 20150422
  Receipt Date: 20150422
  Transmission Date: 20150821
  Serious: No
  Sender: FDA-Public Use
  Company Number: US-009507513-1504USA014558

PATIENT

DRUGS (1)
  1. PROVENTIL [Suspect]
     Active Substance: ALBUTEROL
     Dosage: UNKNOWN, POTENCY: 180 UG

REACTIONS (3)
  - Cough [Unknown]
  - Expired product administered [Unknown]
  - Drug ineffective [Unknown]
